FAERS Safety Report 6603022-5 (Version None)
Quarter: 2010Q1

REPORT INFORMATION
  Report Type: 
  Country: None (occurrence: None)
  Receive Date: 20100226
  Receipt Date: 20100215
  Transmission Date: 20100710
  Serious: No
  Sender: FDA-Public Use
  Company Number: US-BAYER-201014143NA

PATIENT
  Age: 29 Year
  Sex: Female

DRUGS (11)
  1. MIRENA [Suspect]
     Indication: CONTRACEPTION
     Dosage: FREQUENCY: CONTINUOUS
     Route: 015
     Dates: start: 20040801
  2. TESSALON [Concomitant]
     Route: 065
  3. SYNTHROID [Concomitant]
     Route: 065
  4. ZYRTEC [Concomitant]
     Route: 065
  5. MUCINEX [Concomitant]
     Route: 065
  6. BENTYL [Concomitant]
     Route: 065
  7. TRAZODONE HCL [Concomitant]
     Route: 065
  8. PHENERGAN HCL [Concomitant]
     Route: 065
  9. KLONOPIN [Concomitant]
     Route: 065
  10. SCELEXA [Concomitant]
     Route: 065
  11. NAPROSYN [Concomitant]
     Route: 065

REACTIONS (8)
  - CERVICITIS HUMAN PAPILLOMA VIRUS [None]
  - MEDICAL DEVICE COMPLICATION [None]
  - OLIGOMENORRHOEA [None]
  - PELVIC PAIN [None]
  - PENILE PAIN [None]
  - POST PROCEDURAL HAEMORRHAGE [None]
  - SMEAR CERVIX ABNORMAL [None]
  - VAGINAL HAEMORRHAGE [None]
